FAERS Safety Report 7574687-9 (Version None)
Quarter: 2011Q2

REPORT INFORMATION
  Report Type: 
  Country: None (occurrence: None)
  Receive Date: 20110627
  Receipt Date: 20110617
  Transmission Date: 20111010
  Serious: No
  Sender: FDA-Public Use
  Company Number: US-JNJFOC-20110610056

PATIENT
  Sex: Female
  Weight: 79.3 kg

DRUGS (17)
  1. LORATADINE [Concomitant]
     Route: 048
     Dates: start: 20040601
  2. DICLOFENAC SODIUM [Concomitant]
     Route: 048
     Dates: start: 20090410
  3. LEVOTHYROXINE SODIUM [Concomitant]
     Route: 048
     Dates: start: 20100201
  4. GOLIMUMAB [Suspect]
     Indication: RHEUMATOID ARTHRITIS
     Route: 058
     Dates: start: 20061012
  5. TYLENOL-500 [Concomitant]
     Dates: start: 20110202
  6. CLONIDINE [Concomitant]
     Route: 048
     Dates: start: 20100215
  7. ZOCOR [Concomitant]
     Route: 048
     Dates: start: 20070518
  8. ASCORBIC ACID [Concomitant]
     Route: 048
     Dates: start: 20101202
  9. METHOTREXATE [Suspect]
     Indication: RHEUMATOID ARTHRITIS
     Route: 048
     Dates: start: 20060927, end: 20080501
  10. ULTRAM [Concomitant]
     Route: 048
     Dates: start: 20110325
  11. OMEPRAZOLE [Concomitant]
     Route: 048
     Dates: start: 20071216
  12. ASPIRIN [Concomitant]
     Route: 048
     Dates: start: 20101027
  13. GOLIMUMAB [Suspect]
     Route: 058
     Dates: start: 20070201
  14. MULTI-VITAMINS [Concomitant]
     Dates: start: 20040601
  15. METHOTREXATE [Concomitant]
     Route: 048
     Dates: start: 20080611
  16. FOLIC ACID [Concomitant]
     Route: 048
     Dates: start: 20060201
  17. CITRACAL [Concomitant]
     Dates: start: 20100201

REACTIONS (1)
  - BASAL CELL CARCINOMA [None]
